FAERS Safety Report 22649349 (Version 5)
Quarter: 2024Q1

REPORT INFORMATION
  Report Type: Report from Study
  Country: BR (occurrence: BR)
  Receive Date: 20230628
  Receipt Date: 20240129
  Transmission Date: 20240410
  Serious: Yes (Other)
  Sender: FDA-Public Use
  Company Number: BR-002147023-NVSC2023BR146698

PATIENT
  Age: 37 Year
  Sex: Female

DRUGS (3)
  1. SCEMBLIX [Suspect]
     Active Substance: ASCIMINIB HYDROCHLORIDE
     Indication: Chronic myeloid leukaemia
     Dosage: 40 MG, QD (STRENGTH: 40 MG)
     Route: 065
     Dates: start: 20220823
  2. SCEMBLIX [Suspect]
     Active Substance: ASCIMINIB HYDROCHLORIDE
     Dosage: 40 MG, BID (80 MG)
     Route: 065
  3. SCEMBLIX [Suspect]
     Active Substance: ASCIMINIB HYDROCHLORIDE
     Dosage: 80 MG
     Route: 048
     Dates: end: 20231129

REACTIONS (2)
  - Cytopenia [Unknown]
  - Loss of therapeutic response [Unknown]

NARRATIVE: CASE EVENT DATE: 20231129
